FAERS Safety Report 7464476-8 (Version None)
Quarter: 2011Q2

REPORT INFORMATION
  Report Type: 
  Country: None (occurrence: None)
  Receive Date: 20110509
  Receipt Date: 20110505
  Transmission Date: 20111010
  Serious: No
  Sender: FDA-Public Use
  Company Number: US-PFIZER INC-2011097452

PATIENT
  Sex: Female
  Weight: 68.027 kg

DRUGS (7)
  1. ADVIL LIQUI-GELS [Suspect]
     Indication: VULVOVAGINAL PAIN
     Dosage: 200 MG, 2X/DAY
     Route: 048
     Dates: start: 20110504
  2. SALAGEN [Concomitant]
     Dosage: UNK
  3. PROZAC [Concomitant]
     Dosage: UNK
  4. AMBIEN [Concomitant]
     Indication: INSOMNIA
     Dosage: UNK
  5. PERPHENAZINE [Concomitant]
     Dosage: UNK
  6. ATIVAN [Concomitant]
     Dosage: UNK
  7. ADVIL LIQUI-GELS [Suspect]
     Indication: PROCTALGIA

REACTIONS (1)
  - DRUG INEFFECTIVE [None]
